FAERS Safety Report 9637753 (Version 3)
Quarter: 2013Q4

REPORT INFORMATION
  Report Type: Report from Study
  Country: US (occurrence: US)
  Receive Date: 20131022
  Receipt Date: 20131126
  Transmission Date: 20140711
  Serious: Yes (Hospitalization)
  Sender: FDA-Public Use
  Company Number: US-VERTEX PHARMACEUTICALS INC-AE-2012-008798

PATIENT
  Sex: Male

DRUGS (20)
  1. VX-770 [Suspect]
     Indication: CYSTIC FIBROSIS
     Dosage: 150 MG, QD
     Route: 048
     Dates: start: 20120518
  2. ABILIFY [Concomitant]
  3. CONCERTA [Concomitant]
  4. FLUOXETINE HYDROCHLORIDE [Concomitant]
  5. IMITREX [Concomitant]
  6. LEVEMIR [Concomitant]
  7. MEGACE ES [Concomitant]
  8. MEPHYTON [Concomitant]
  9. NASONEX [Concomitant]
  10. NEURONTIN [Concomitant]
  11. NEXIUM [Concomitant]
  12. NUTREN 1.0 [Concomitant]
  13. PREDNISONE [Concomitant]
  14. PULMOZYME [Concomitant]
  15. SYNTHROID [Concomitant]
  16. VITAMIN D [Concomitant]
  17. VITAMIN E [Concomitant]
  18. XOPENEX [Concomitant]
  19. ZENPEP [Concomitant]
  20. ZOLPIDEM TARTRATE [Concomitant]

REACTIONS (5)
  - Chronic sinusitis [Not Recovered/Not Resolved]
  - Infective pulmonary exacerbation of cystic fibrosis [Not Recovered/Not Resolved]
  - Sinus headache [Not Recovered/Not Resolved]
  - Treatment noncompliance [Unknown]
  - Drug ineffective [Unknown]
